FAERS Safety Report 5806594-3 (Version None)
Quarter: 2008Q3

REPORT INFORMATION
  Report Type: 
  Country: None (occurrence: None)
  Receive Date: 20080710
  Receipt Date: 20080630
  Transmission Date: 20090109
  Serious: Yes (Other)
  Sender: FDA-Public Use
  Company Number: PHHY2008DE12754

PATIENT
  Sex: Female

DRUGS (1)
  1. ZOLEDRONIC ACID [Suspect]
     Route: 042

REACTIONS (7)
  - BACK PAIN [None]
  - JOINT EFFUSION [None]
  - JOINT SWELLING [None]
  - KNEE OPERATION [None]
  - NECK PAIN [None]
  - PYREXIA [None]
  - RENAL PAIN [None]
